FAERS Safety Report 7553665-X (Version None)
Quarter: 2011Q2

REPORT INFORMATION
  Report Type: 
  Country: None (occurrence: None)
  Receive Date: 20110617
  Receipt Date: 20110606
  Transmission Date: 20111010
  Serious: Yes (Hospitalization)
  Sender: FDA-Public Use
  Company Number: FR-JNJFOC-20110606261

PATIENT
  Sex: Male

DRUGS (3)
  1. ACETAMINOPHEN AND TRAMADOL HCL [Suspect]
     Indication: CHEST PAIN
     Dosage: 1 TO 4 TABLETS DAILY
     Route: 048
     Dates: start: 20110208, end: 20110213
  2. KETOPROFEN [Suspect]
     Indication: CHEST PAIN
     Route: 048
     Dates: start: 20110208, end: 20110213
  3. MOXIFLOXACIN HCL [Suspect]
     Indication: LUNG DISORDER
     Route: 048
     Dates: start: 20110203, end: 20110213

REACTIONS (3)
  - RASH MACULO-PAPULAR [None]
  - PYREXIA [None]
  - GENERAL PHYSICAL HEALTH DETERIORATION [None]
